FAERS Safety Report 16579192 (Version 1)
Quarter: 2019Q3

REPORT INFORMATION
  Report Type: Spontaneous
  Country: CN (occurrence: CN)
  Receive Date: 20190716
  Receipt Date: 20190716
  Transmission Date: 20191004
  Serious: Yes (Hospitalization)
  Sender: FDA-Public Use
  Company Number: CN-GLAXOSMITHKLINE-CN2019APC086415

PATIENT

DRUGS (7)
  1. ACYCLOVIR. [Suspect]
     Active Substance: ACYCLOVIR
     Indication: HERPES ZOSTER
     Dosage: UNK
     Route: 061
  2. RIBAVIRIN. [Suspect]
     Active Substance: RIBAVIRIN
     Indication: HERPES ZOSTER
     Dosage: UNK
     Route: 042
  3. ASPIRIN. [Concomitant]
     Active Substance: ASPIRIN
     Indication: CAROTID ARTERIOSCLEROSIS
     Dosage: UNK
  4. CEFTAZIDIME. [Suspect]
     Active Substance: CEFTAZIDIME
     Indication: HERPES ZOSTER
     Dosage: UNK
     Route: 042
  5. SHIHUIDA (TRADITIONAL CHINESE MEDICINE) [Concomitant]
     Indication: PRODUCT USED FOR UNKNOWN INDICATION
     Dosage: UNK
  6. AMLODIPINE BESYLATE. [Concomitant]
     Active Substance: AMLODIPINE BESYLATE
     Indication: CORONARY ARTERY DISEASE
     Dosage: UNK
  7. ROSUVASTATIN CALCIUM. [Concomitant]
     Active Substance: ROSUVASTATIN CALCIUM
     Indication: HYPERLIPIDAEMIA
     Dosage: UNK

REACTIONS (8)
  - Post herpetic neuralgia [Recovered/Resolved]
  - Scab [Recovered/Resolved]
  - Blister [Recovered/Resolved]
  - Neuralgia [Recovered/Resolved]
  - Nyctalgia [Recovered/Resolved]
  - Erythema [Recovered/Resolved]
  - Pain [Recovered/Resolved]
  - Rash papular [Recovered/Resolved]
